FAERS Safety Report 4349381-8 (Version None)
Quarter: 2004Q2

REPORT INFORMATION
  Report Type: 
  Country: None (occurrence: None)
  Receive Date: 20040428
  Receipt Date: 20040422
  Transmission Date: 20050107
  Serious: Yes (Hospitalization)
  Sender: FDA-Public Use
  Company Number: FI-BRISTOL-MYERS SQUIBB COMPANY-12568507

PATIENT
  Age: 57 Year
  Sex: Male

DRUGS (9)
  1. PRAVACHOL [Suspect]
     Indication: HYPERCHOLESTEROLAEMIA
     Route: 048
     Dates: start: 20040323, end: 20040327
  2. MICARDIS [Concomitant]
     Dates: start: 19900101
  3. ASPIRIN [Concomitant]
     Dosage: ^FOR SEVERAL YEARS^
  4. SPESICOR [Concomitant]
     Dates: start: 20040323, end: 20040325
  5. FUROSEMIDE [Concomitant]
     Dates: start: 20040323, end: 20040324
  6. PLAVIX [Concomitant]
     Dates: start: 20040323
  7. LOSEC [Concomitant]
     Dates: start: 20040323, end: 20040331
  8. ZINACEF [Concomitant]
     Dates: start: 20040325, end: 20040330
  9. KLEXANE [Concomitant]
     Route: 058
     Dates: start: 20040323, end: 20040324

REACTIONS (1)
  - HEPATOTOXICITY [None]
